FAERS Safety Report 10060127 (Version 1)
Quarter: 2014Q2

REPORT INFORMATION
  Report Type: Spontaneous
  Country: US (occurrence: US)
  Receive Date: 20140404
  Receipt Date: 20140404
  Transmission Date: 20141212
  Serious: Yes (Hospitalization)
  Sender: FDA-Public Use
  Company Number: PHHY2014US040324

PATIENT
  Age: 67 Year
  Sex: Female

DRUGS (6)
  1. CUBICIN [Suspect]
     Indication: INFECTION
     Route: 042
  2. CUBICIN [Suspect]
     Indication: OFF LABEL USE
  3. VANCOMYCIN [Suspect]
     Indication: INFECTION
     Route: 042
  4. CEFTRIAXONE [Suspect]
     Indication: INFECTION
     Route: 042
  5. TRIAMCINOLONE [Concomitant]
  6. TOBRAMYCIN [Concomitant]

REACTIONS (6)
  - Encephalopathy [Unknown]
  - Cerebrovascular accident [Unknown]
  - Cerebellar infarction [Unknown]
  - Cerebral infarction [Unknown]
  - Drug reaction with eosinophilia and systemic symptoms [Unknown]
  - Eosinophilic pneumonia [Unknown]
